FAERS Safety Report 15457986 (Version 1)
Quarter: 2018Q4

REPORT INFORMATION
  Report Type: Spontaneous
  Country: DE (occurrence: DE)
  Receive Date: 20181003
  Receipt Date: 20181003
  Transmission Date: 20190204
  Serious: Yes (Other)
  Sender: FDA-Public Use
  Company Number: DE-ASTELLAS-2018US042471

PATIENT
  Sex: Male

DRUGS (3)
  1. ZOLEDRONIC [Concomitant]
     Active Substance: ZOLEDRONIC ACID
     Indication: PRODUCT USED FOR UNKNOWN INDICATION
     Dosage: UNK UNK, UNKNOWN FREQ.
     Route: 065
  2. XTANDI [Suspect]
     Active Substance: ENZALUTAMIDE
     Indication: PRODUCT USED FOR UNKNOWN INDICATION
     Dosage: UNK UNK, UNKNOWN FREQ.
     Route: 065
  3. XTANDI [Suspect]
     Active Substance: ENZALUTAMIDE
     Indication: PRODUCT USED FOR UNKNOWN INDICATION
     Dosage: UNK UNK, UNKNOWN FREQ.
     Route: 065
     Dates: start: 201808

REACTIONS (12)
  - Incontinence [Unknown]
  - Pain [Unknown]
  - Muscular weakness [Unknown]
  - Abnormal dreams [Unknown]
  - Hot flush [Unknown]
  - Hyperhidrosis [Unknown]
  - Prostatic specific antigen increased [Unknown]
  - Confusional state [Unknown]
  - Fatigue [Unknown]
  - Visual impairment [Unknown]
  - Sleep disorder [Unknown]
  - Headache [Unknown]
